FAERS Safety Report 15422499 (Version 2)
Quarter: 2018Q3

REPORT INFORMATION
  Report Type: Spontaneous
  Country: US (occurrence: US)
  Receive Date: 20180925
  Receipt Date: 20180927
  Transmission Date: 20181010
  Serious: No
  Sender: FDA-Public Use
  Company Number: US-009507513-1809USA002253

PATIENT
  Age: 31 Year
  Sex: Male

DRUGS (1)
  1. FOLLISTIM [Suspect]
     Active Substance: FOLLITROPIN
     Indication: HEPATITIS C
     Dosage: UNK
     Route: 048
     Dates: start: 201808

REACTIONS (4)
  - Injection site bruising [Unknown]
  - Mass [Unknown]
  - Product use in unapproved indication [Unknown]
  - Product use issue [Unknown]
